FAERS Safety Report 10589642 (Version 1)
Quarter: 2014Q4

REPORT INFORMATION
  Report Type: Report from Study
  Country: BR (occurrence: BR)
  Receive Date: 20141118
  Receipt Date: 20141118
  Transmission Date: 20150529
  Serious: Yes (Hospitalization)
  Sender: FDA-Public Use
  Company Number: PHHY2014BR146667

PATIENT
  Sex: Female
  Weight: 70 kg

DRUGS (9)
  1. DROSPIRENONE W/ESTRADIOL [Concomitant]
     Indication: ENDOMETRIOSIS
     Dosage: 1 DF, QD
     Route: 065
     Dates: start: 201312
  2. OSCAL D [Concomitant]
     Active Substance: CALCIUM CARBONATE\CHOLECALCIFEROL
     Indication: STILL^S DISEASE ADULT ONSET
     Dosage: 1 DF, QD
     Route: 065
     Dates: start: 201302
  3. METICORTEN [Concomitant]
     Active Substance: PREDNISONE
     Indication: STILL^S DISEASE ADULT ONSET
     Dosage: 1 DF, QMO
     Route: 065
     Dates: start: 201211
  4. MAXXI D3 [Concomitant]
     Indication: STILL^S DISEASE ADULT ONSET
     Dosage: 1 DF, QD
     Route: 065
     Dates: start: 201302
  5. ILARIS [Suspect]
     Active Substance: CANAKINUMAB
     Indication: CRYOPYRIN ASSOCIATED PERIODIC SYNDROME
     Dosage: UNK
     Route: 065
     Dates: start: 201311, end: 20140626
  6. PANTOPRAZOLE [Concomitant]
     Active Substance: PANTOPRAZOLE SODIUM
     Indication: STILL^S DISEASE ADULT ONSET
     Dosage: 1 DF, QD
     Route: 065
     Dates: start: 201302
  7. OSTEOBLOCK [Concomitant]
     Indication: STILL^S DISEASE ADULT ONSET
     Dosage: 1 DF, QW
     Route: 065
     Dates: start: 201302
  8. METHOTREXATE [Concomitant]
     Active Substance: METHOTREXATE
     Indication: STILL^S DISEASE ADULT ONSET
     Dosage: 1 DF, QW
     Route: 065
     Dates: start: 20141022
  9. ENDOFOLIN [Concomitant]
     Active Substance: FOLIC ACID
     Indication: STILL^S DISEASE ADULT ONSET
     Dosage: 1 DF, QW
     Route: 065
     Dates: start: 20141022

REACTIONS (3)
  - Pyrexia [Recovered/Resolved]
  - Hypersensitivity [Recovered/Resolved]
  - Platelet count decreased [Recovered/Resolved]
